FAERS Safety Report 5681291-6 (Version None)
Quarter: 2008Q1

REPORT INFORMATION
  Report Type: 
  Country: None (occurrence: None)
  Receive Date: 20080326
  Receipt Date: 20070117
  Transmission Date: 20080703
  Serious: No
  Sender: FDA-Public Use
  Company Number: US-BAYER-US-2007-001603

PATIENT
  Age: 44 Year
  Sex: Female
  Weight: 59 kg

DRUGS (2)
  1. MIRENA [Suspect]
     Indication: POLYMENORRHAGIA
     Route: 015
     Dates: start: 20061005
  2. VALTREX [Concomitant]

REACTIONS (2)
  - OLIGOMENORRHOEA [None]
  - PROCEDURAL PAIN [None]
